FAERS Safety Report 8343855 (Version 4)
Quarter: 2012Q4

REPORT INFORMATION
  Report Type: 
  Country: US (occurrence: US)
  Receive Date: 20120119
  Receipt Date: 20121226
  Transmission Date: 20130627
  Serious: Yes (Hospitalization, Disabling, Other)
  Sender: FDA-Public Use
  Company Number: US-009507513-1201USA02276

PATIENT

DRUGS (9)
  1. FOSAMAX [Suspect]
     Indication: OSTEOPOROSIS
     Dosage: 70 mgqw
     Route: 048
     Dates: start: 200712
  2. FOSAMAX PLUS D [Suspect]
     Indication: OSTEOPOROSIS
     Dosage: 70 mg, qw
     Route: 048
     Dates: start: 200812, end: 200911
  3. HUMIRA [Concomitant]
     Indication: RHEUMATOID ARTHRITIS
     Dosage: 40 mg, q2w
     Route: 058
     Dates: start: 200701
  4. PYRIDOSTIGMINE BROMIDE [Concomitant]
     Indication: MUSCULAR WEAKNESS
     Dosage: UNK
     Dates: start: 200702, end: 201003
  5. MELOXICAM [Concomitant]
     Indication: OSTEOARTHRITIS
     Dosage: UNK
     Dates: start: 200703, end: 200912
  6. ZOLPIDEM TARTRATE [Concomitant]
     Indication: INSOMNIA
     Dosage: UNK
     Dates: start: 200707, end: 200708
  7. OXYCODONE [Concomitant]
     Indication: PAIN
     Dosage: UNK
     Dates: start: 200708, end: 201101
  8. LUNESTA [Concomitant]
     Indication: INSOMNIA
     Dosage: UNK
     Dates: start: 200709, end: 201002
  9. AMBIEN [Concomitant]
     Indication: INSOMNIA
     Dosage: 5 mg, prn
     Route: 048

REACTIONS (10)
  - Femur fracture [Unknown]
  - Hip arthroplasty [Unknown]
  - Uterine prolapse repair [Unknown]
  - Osteoarthritis [Not Recovered/Not Resolved]
  - Hypoaesthesia [Recovered/Resolved]
  - Oedema [Unknown]
  - Stasis dermatitis [Unknown]
  - Diabetes mellitus [Unknown]
  - Soft tissue injury [Unknown]
  - Wound [Unknown]
